FAERS Safety Report 8153822-8 (Version None)
Quarter: 2012Q1

REPORT INFORMATION
  Report Type: 
  Country: None (occurrence: None)
  Receive Date: 20120221
  Receipt Date: 20120216
  Transmission Date: 20120608
  Serious: Yes (Hospitalization)
  Sender: FDA-Public Use
  Company Number: ES-GLAXOSMITHKLINE-B0782748A

PATIENT
  Age: 26 Year
  Sex: Female

DRUGS (4)
  1. ZONEGRAN [Concomitant]
     Dates: end: 20111220
  2. LAMOTRIGINE [Concomitant]
     Indication: PARTIAL SEIZURES
     Dosage: 225MG PER DAY
     Route: 048
  3. POTIGA [Suspect]
     Indication: PARTIAL SEIZURES
     Route: 048
     Dates: start: 20111220, end: 20120211
  4. VALPROIC ACID [Concomitant]
     Indication: PARTIAL SEIZURES
     Dosage: 1300MG PER DAY
     Route: 048

REACTIONS (3)
  - STATUS EPILEPTICUS [None]
  - PARTIAL SEIZURES [None]
  - LOSS OF CONSCIOUSNESS [None]
